FAERS Safety Report 5340555-6 (Version None)
Quarter: 2007Q2

REPORT INFORMATION
  Report Type: 
  Country: None (occurrence: None)
  Receive Date: 20070531
  Receipt Date: 20070423
  Transmission Date: 20071010
  Serious: Yes (Death)
  Sender: FDA-Public Use
  Company Number: JP-PFIZER INC-2007023146

PATIENT
  Age: 72 Year
  Sex: Male
  Weight: 46 kg

DRUGS (5)
  1. VFEND [Suspect]
     Indication: BRONCHOPULMONARY ASPERGILLOSIS
     Route: 042
     Dates: start: 20060721, end: 20060721
  2. VFEND [Suspect]
     Route: 042
     Dates: start: 20060722, end: 20060724
  3. ITRACONAZOLE [Concomitant]
     Route: 048
     Dates: start: 20040101, end: 20060720
  4. GASTER [Concomitant]
     Route: 048
  5. SPIRIVA [Concomitant]
     Route: 055

REACTIONS (2)
  - EMBOLISM [None]
  - RENAL FAILURE [None]
